FAERS Safety Report 26022758 (Version 1)
Quarter: 2025Q4

REPORT INFORMATION
  Report Type: Other
  Country: US (occurrence: US)
  Receive Date: 20251110
  Receipt Date: 20251110
  Transmission Date: 20260117
  Serious: Yes (Other)
  Sender: SCIECURE PHARMA
  Company Number: US-Sciecure Pharma Inc.-2188245

PATIENT
  Age: 62 Year
  Sex: Female

DRUGS (4)
  1. PAROXETINE HYDROCHLORIDE [Suspect]
     Active Substance: PAROXETINE HYDROCHLORIDE
  2. CLONAZEPAM [Suspect]
     Active Substance: CLONAZEPAM
  3. MECLIZINE [Suspect]
     Active Substance: MECLIZINE HYDROCHLORIDE
  4. CYCLOBENZAPRINE [Suspect]
     Active Substance: CYCLOBENZAPRINE

REACTIONS (1)
  - Road traffic accident [Unknown]
